FAERS Safety Report 21597122 (Version 2)
Quarter: 2022Q4

REPORT INFORMATION
  Report Type: Report from Study
  Country: BR (occurrence: BR)
  Receive Date: 20221115
  Receipt Date: 20221202
  Transmission Date: 20230112
  Serious: Yes (Other)
  Sender: FDA-Public Use
  Company Number: BR-ABBVIE-4200277

PATIENT
  Age: 78 Year
  Sex: Female
  Weight: 98 kg

DRUGS (5)
  1. RINVOQ [Suspect]
     Active Substance: UPADACITINIB
     Indication: Rheumatoid arthritis
     Route: 048
     Dates: start: 20210901
  2. LOSARTAN [Concomitant]
     Active Substance: LOSARTAN
     Indication: Blood pressure management
     Dosage: FORM STRENGTH: 50 MILLIGRAM
     Route: 048
     Dates: start: 2016
  3. CORTISONE [Concomitant]
     Active Substance: CORTISONE
     Indication: Rheumatoid arthritis
     Dosage: FORM STRENGTH: 5 MILLIGRAM
     Route: 048
     Dates: start: 2019
  4. PREGABALIN [Concomitant]
     Active Substance: PREGABALIN
     Indication: Sciatica
     Dosage: FORM STRENGTH: 75 MILLIGRAM
     Route: 048
     Dates: start: 2021
  5. PREGABALIN [Concomitant]
     Active Substance: PREGABALIN
     Indication: Sciatica
     Dosage: FORM STRENGTH: 50 MILLIGRAM
     Route: 048
     Dates: start: 2021

REACTIONS (4)
  - Foot fracture [Recovering/Resolving]
  - Fall [Unknown]
  - Mobility decreased [Unknown]
  - Gait inability [Not Recovered/Not Resolved]

NARRATIVE: CASE EVENT DATE: 20221101
